FAERS Safety Report 4286983-1 (Version None)
Quarter: 2004Q1

REPORT INFORMATION
  Report Type: 
  Country: None (occurrence: None)
  Receive Date: 20040204
  Receipt Date: 20040121
  Transmission Date: 20041129
  Serious: Yes (Hospitalization)
  Sender: FDA-Public Use
  Company Number: 2004PK00161

PATIENT
  Age: 42 Year
  Sex: Female
  Weight: 93 kg

DRUGS (5)
  1. ACERBON ^ZENECA^ [Suspect]
     Indication: HYPERTENSION
     Dosage: 5 MG DAILY PO
     Route: 048
     Dates: start: 20000101
  2. INSULIN ACTRAPHANE [Suspect]
     Indication: DIABETES MELLITUS INSULIN-DEPENDENT
     Dosage: 44 IU DAILY SQ
     Route: 058
     Dates: start: 19970101, end: 20031114
  3. INSULIN ACTRAPID ^NOVO NORDISK^ [Suspect]
     Indication: DIABETES MELLITUS INSULIN-DEPENDENT
     Dosage: 6 IU DAILY SQ
     Route: 058
     Dates: start: 19970101
  4. CONCOR [Suspect]
     Indication: HYPERTENSION
     Dosage: 3.75 MG DAILY PO
     Route: 048
     Dates: start: 20000101
  5. ASPIRIN [Concomitant]

REACTIONS (4)
  - DRUG INTERACTION [None]
  - INFLUENZA [None]
  - MARKEDLY REDUCED DIETARY INTAKE [None]
  - SHOCK HYPOGLYCAEMIC [None]
